FAERS Safety Report 10151114 (Version 1)
Quarter: 2014Q2

REPORT INFORMATION
  Report Type: Spontaneous
  Country: FR (occurrence: FR)
  Receive Date: 20140502
  Receipt Date: 20140502
  Transmission Date: 20141212
  Serious: Yes (Hospitalization)
  Sender: FDA-Public Use
  Company Number: FR-PFIZER INC-2014115791

PATIENT
  Age: 79 Year
  Sex: Male

DRUGS (7)
  1. ARACYTINE [Suspect]
     Indication: ACUTE MYELOID LEUKAEMIA
     Dosage: 40 MG, 1X/DAY
     Route: 058
     Dates: start: 20140324
  2. IDARUBICIN HCL [Suspect]
     Indication: ACUTE MYELOID LEUKAEMIA
     Dosage: 8 MG/M2, UNK
     Route: 058
     Dates: start: 20140324
  3. PLAVIX [Concomitant]
     Dosage: 1 DF, DAILY
  4. AMLOR [Concomitant]
     Dosage: 5 MG, 1X/DAY
  5. BISOCE [Concomitant]
     Dosage: 5 MG, 1X/DAY
  6. PRETERAX [Concomitant]
     Dosage: 1 DF, 1X/DAY
  7. METFORMIN [Concomitant]
     Dosage: 500 MG, 2X/DAY, IN THE MORNING AND EVENING

REACTIONS (1)
  - Pancytopenia [Not Recovered/Not Resolved]
